FAERS Safety Report 4588746-6 (Version None)
Quarter: 2005Q1

REPORT INFORMATION
  Report Type: 
  Country: None (occurrence: None)
  Receive Date: 20050222
  Receipt Date: 20050215
  Transmission Date: 20050727
  Serious: Yes (Other)
  Sender: FDA-Public Use
  Company Number: US-BRISTOL-MYERS SQUIBB COMPANY-12863536

PATIENT
  Age: 52 Year
  Sex: Male

DRUGS (5)
  1. ERBITUX [Suspect]
     Indication: PANCREATIC CARCINOMA
     Route: 042
     Dates: start: 20050106
  2. BENADRYL [Concomitant]
     Indication: PREMEDICATION
     Dates: start: 20050106
  3. KYTRIL [Concomitant]
     Indication: PREMEDICATION
     Dates: start: 20050106
  4. IRINOTECAN HCL [Concomitant]
     Dates: start: 20050106
  5. LIPRAM-CR20 [Concomitant]

REACTIONS (3)
  - BILIARY TRACT INFECTION [None]
  - DERMATITIS ACNEIFORM [None]
  - RASH [None]
